FAERS Safety Report 4594131-3 (Version None)
Quarter: 2005Q1

REPORT INFORMATION
  Report Type: 
  Country: None (occurrence: None)
  Receive Date: 20050301
  Receipt Date: 20050218
  Transmission Date: 20050727
  Serious: Yes (Other)
  Sender: FDA-Public Use
  Company Number: DE-JNJFOC-20050204806

PATIENT
  Age: 21 Year
  Sex: Male

DRUGS (7)
  1. HALDOL [Suspect]
  2. HALDOL [Suspect]
     Indication: DRUG USE FOR UNKNOWN INDICATION
  3. SOLIAN [Concomitant]
  4. TAVOR [Concomitant]
  5. TAVOR [Concomitant]
  6. TAVOR [Concomitant]
  7. AKINETON [Concomitant]

REACTIONS (1)
  - COORDINATION ABNORMAL [None]
